FAERS Safety Report 7508353-2 (Version None)
Quarter: 2011Q2

REPORT INFORMATION
  Report Type: 
  Country: None (occurrence: None)
  Receive Date: 20110527
  Receipt Date: 20110520
  Transmission Date: 20111010
  Serious: Yes (Hospitalization)
  Sender: FDA-Public Use
  Company Number: US-PFIZER INC-2011110561

PATIENT
  Sex: Female

DRUGS (11)
  1. CYTOXAN [Suspect]
     Indication: BREAST CANCER
     Dosage: 1095 MG, UNK
     Route: 042
     Dates: start: 20110112
  2. IXEMPRA KIT [Suspect]
     Indication: BREAST CANCER
     Dosage: 80 MG, UNK
     Route: 042
     Dates: start: 20110406
  3. NOVOLIN 70/30 [Concomitant]
  4. AMLODIPINE [Concomitant]
  5. HYDROMORPHONE HYDROCHLORIDE [Concomitant]
  6. FUROSEMIDE [Concomitant]
  7. LEVOTHYROXINE SODIUM [Concomitant]
  8. CITALOPRAM [Concomitant]
  9. LORAZEPAM [Concomitant]
  10. CLONIDINE [Concomitant]
  11. ADRIAMYCIN PFS [Suspect]
     Indication: BREAST CANCER
     Dosage: 110 MG, UNK
     Route: 042
     Dates: start: 20110112

REACTIONS (5)
  - NEUTROPENIA [None]
  - ANAEMIA [None]
  - PNEUMONIA [None]
  - THROMBOCYTOPENIA [None]
  - LEUKOPENIA [None]
